FAERS Safety Report 4577314-8 (Version None)
Quarter: 2005Q1

REPORT INFORMATION
  Report Type: 
  Country: None (occurrence: None)
  Receive Date: 20050210
  Receipt Date: 20050127
  Transmission Date: 20050727
  Serious: Yes (Hospitalization)
  Sender: FDA-Public Use
  Company Number: A0542592A

PATIENT
  Age: 33 Year
  Sex: Male

DRUGS (6)
  1. GOODY'S EXTRA STRENGTH HEADACHE POWDER [Suspect]
     Route: 048
     Dates: start: 19950101
  2. DIAZEPAM [Concomitant]
  3. HUMIBID [Concomitant]
  4. ZYRTEC-D 12 HOUR [Concomitant]
  5. NASAL SPRAY [Concomitant]
  6. NICORETTE (ORANGE) [Concomitant]
     Route: 002
     Dates: start: 20010101

REACTIONS (5)
  - ASTHMA LATE ONSET [None]
  - DIABETES MELLITUS NON-INSULIN-DEPENDENT [None]
  - DRUG ABUSER [None]
  - FAECAL INCONTINENCE [None]
  - GASTROOESOPHAGEAL REFLUX DISEASE [None]
